FAERS Safety Report 8269137-3 (Version None)
Quarter: 2012Q2

REPORT INFORMATION
  Report Type: 
  Country: None (occurrence: None)
  Receive Date: 20120409
  Receipt Date: 20120402
  Transmission Date: 20120825
  Serious: Yes (Hospitalization, Other)
  Sender: FDA-Public Use
  Company Number: US-TEVA-331950USA

PATIENT
  Sex: Female
  Weight: 98.518 kg

DRUGS (2)
  1. ORAP [Suspect]
     Dosage: 2 MILLIGRAM;
     Route: 048
     Dates: start: 19850101, end: 19950101
  2. ORAP [Suspect]
     Indication: TOURETTE'S DISORDER
     Dosage: 4 MILLIGRAM;
     Route: 048
     Dates: start: 19850101, end: 20120301

REACTIONS (2)
  - SUICIDAL IDEATION [None]
  - DEPRESSION [None]
